FAERS Safety Report 13524539 (Version 4)
Quarter: 2019Q2

REPORT INFORMATION
  Report Type: Report from Study
  Country: US (occurrence: US)
  Receive Date: 20170508
  Receipt Date: 20190604
  Transmission Date: 20190711
  Serious: Yes (Hospitalization)
  Sender: FDA-Public Use
  Company Number: US-ACTELION-A-NJ2017-153517

PATIENT
  Age: 39 Year
  Sex: Female
  Weight: 124.72 kg

DRUGS (9)
  1. LASIX [Concomitant]
     Active Substance: FUROSEMIDE
     Dosage: 40 MG, BID
  2. OPSUMIT [Suspect]
     Active Substance: MACITENTAN
     Indication: PULMONARY HYPERTENSION
     Dosage: 10 MG, QD
     Route: 048
     Dates: start: 20170114
  3. LASIX [Concomitant]
     Active Substance: FUROSEMIDE
     Dosage: 40 MG, TID
     Dates: start: 201611
  4. METOLAZONE. [Concomitant]
     Active Substance: METOLAZONE
     Dosage: 2.5 MG, QD
  5. TYVASO [Concomitant]
     Active Substance: TREPROSTINIL
  6. SPIRONOLACTONE. [Concomitant]
     Active Substance: SPIRONOLACTONE
     Dosage: 25 MG, TID
     Dates: start: 201611
  7. SILDENAFIL CITRATE. [Concomitant]
     Active Substance: SILDENAFIL CITRATE
  8. METOLAZONE. [Concomitant]
     Active Substance: METOLAZONE
     Dosage: 25 MG, BID
     Dates: start: 201611
  9. KCL [Concomitant]
     Active Substance: POTASSIUM CHLORIDE
     Dosage: 100 MG, QID

REACTIONS (13)
  - Chest pain [Unknown]
  - Dyspnoea exertional [Unknown]
  - Supraventricular tachycardia [Recovered/Resolved]
  - Electrolyte imbalance [Unknown]
  - Hypokalaemia [Recovering/Resolving]
  - Product dose omission [Unknown]
  - Headache [Unknown]
  - Dyspnoea [Not Recovered/Not Resolved]
  - Nausea [Unknown]
  - Dyspnoea at rest [Not Recovered/Not Resolved]
  - Malaise [Unknown]
  - Dizziness [Unknown]
  - Palpitations [Unknown]

NARRATIVE: CASE EVENT DATE: 20190225
